FAERS Safety Report 10246724 (Version 2)
Quarter: 2015Q3

REPORT INFORMATION
  Report Type: Spontaneous
  Country: US (occurrence: US)
  Receive Date: 20140619
  Receipt Date: 20150719
  Transmission Date: 20151125
  Serious: Yes (Death, Hospitalization, Other)
  Sender: FDA-Public Use
  Company Number: US-SA-2014SA077750

PATIENT
  Age: 71 Year

DRUGS (2)
  1. PLAVIX [Suspect]
     Active Substance: CLOPIDOGREL BISULFATE
     Indication: ACUTE CORONARY SYNDROME
     Route: 048
     Dates: start: 20101004, end: 20101008
  2. ASPIRIN. [Suspect]
     Active Substance: ASPIRIN
     Route: 065
     Dates: start: 20101004, end: 20101008

REACTIONS (10)
  - Haemorrhage urinary tract [Fatal]
  - Thrombotic thrombocytopenic purpura [Unknown]
  - Cerebrovascular accident [Unknown]
  - Urinary tract injury [Fatal]
  - Cerebral haemorrhage [Fatal]
  - Acute kidney injury [Unknown]
  - Multiple injuries [Unknown]
  - Respiratory failure [Unknown]
  - Haemorrhage [Fatal]
  - Haemorrhage [Unknown]

NARRATIVE: CASE EVENT DATE: 20101004
